FAERS Safety Report 15557536 (Version 1)
Quarter: 2018Q4

REPORT INFORMATION
  Report Type: Spontaneous
  Country: IN (occurrence: IN)
  Receive Date: 20181027
  Receipt Date: 20181027
  Transmission Date: 20190205
  Serious: Yes (Other)
  Sender: FDA-Public Use
  Company Number: IN-ROCHE-2206071

PATIENT
  Age: 64 Year
  Sex: Female

DRUGS (1)
  1. AVASTIN [Suspect]
     Active Substance: BEVACIZUMAB
     Indication: RENAL CELL CARCINOMA
     Route: 042
     Dates: end: 2018

REACTIONS (1)
  - Drug resistance [Unknown]
